FAERS Safety Report 6454199-6 (Version None)
Quarter: 2009Q4

REPORT INFORMATION
  Report Type: 
  Country: None (occurrence: None)
  Receive Date: 20091117
  Receipt Date: 20091103
  Transmission Date: 20100525
  Serious: Yes (Other)
  Sender: FDA-Public Use
  Company Number: 20090510

PATIENT
  Age: 27 Year
  Sex: Male

DRUGS (8)
  1. DEXAMETHASONE SODIUM PHOSPHATE [Suspect]
     Indication: ACUTE LYMPHOCYTIC LEUKAEMIA
     Dosage: INJECTION NOS
  2. CYCLOPHOSPHAMIDE [Concomitant]
  3. VINCRISTINE [Concomitant]
  4. DOXORUBICIN HCL [Concomitant]
  5. PREDNISONE TAB [Concomitant]
  6. CYTARABINE [Concomitant]
  7. MERCAPTOPURINE [Concomitant]
  8. METHOTREXATE [Concomitant]

REACTIONS (1)
  - IDIOPATHIC THROMBOCYTOPENIC PURPURA [None]
